FAERS Safety Report 15608653 (Version 1)
Quarter: 2018Q4

REPORT INFORMATION
  Report Type: Report from Study
  Country: US (occurrence: US)
  Receive Date: 20181112
  Receipt Date: 20181112
  Transmission Date: 20190205
  Serious: Yes (Hospitalization)
  Sender: FDA-Public Use
  Company Number: US-TESARO-2018-TSO1677-US

PATIENT
  Sex: Female
  Weight: 78.96 kg

DRUGS (1)
  1. ZEJULA [Suspect]
     Active Substance: NIRAPARIB
     Indication: OVARIAN CANCER
     Dosage: 100 MG, QD
     Route: 048
     Dates: start: 20181017, end: 20181101

REACTIONS (3)
  - Hypertensive crisis [Unknown]
  - Headache [Unknown]
  - Asthenia [Not Recovered/Not Resolved]
